FAERS Safety Report 5443314-9 (Version None)
Quarter: 2007Q3

REPORT INFORMATION
  Report Type: 
  Country: None (occurrence: None)
  Receive Date: 20070831
  Receipt Date: 20070831
  Transmission Date: 20080115
  Serious: Yes (Life-Threatening, Hospitalization, Other)
  Sender: FDA-Public Use
  Company Number: None

PATIENT
  Sex: Male
  Weight: 81.6475 kg

DRUGS (2)
  1. LUXOTTICA EYELASSES LUXOTTICA [Suspect]
     Indication: AMBLYOPIA
     Dates: start: 19810101, end: 20010101
  2. ELAVIL [Suspect]
     Indication: EMOTIONAL DISORDER
     Dates: start: 19810101, end: 20060101

REACTIONS (1)
  - SOMNOLENCE [None]
